FAERS Safety Report 20884669 (Version 1)
Quarter: 2022Q2

REPORT INFORMATION
  Report Type: Spontaneous
  Country: US (occurrence: None)
  Receive Date: 20220527
  Receipt Date: 20220527
  Transmission Date: 20220721
  Serious: Yes (Other)
  Sender: FDA-Public Use
  Company Number: None

PATIENT
  Age: 16 Year
  Sex: Male
  Weight: 89.4 kg

DRUGS (1)
  1. STELARA [Suspect]
     Active Substance: USTEKINUMAB
     Indication: Crohn^s disease
     Dosage: OTHER FREQUENCY : ONCE;?
     Route: 042
     Dates: start: 20220526, end: 20220526

REACTIONS (10)
  - Erythema [None]
  - Erythema [None]
  - Nausea [None]
  - Abdominal pain [None]
  - Throat tightness [None]
  - Chest discomfort [None]
  - Headache [None]
  - Malaise [None]
  - Respiratory distress [None]
  - Infusion related reaction [None]

NARRATIVE: CASE EVENT DATE: 20220526
